FAERS Safety Report 25981925 (Version 1)
Quarter: 2025Q4

REPORT INFORMATION
  Report Type: Spontaneous
  Country: US (occurrence: US)
  Receive Date: 20251031
  Receipt Date: 20251031
  Transmission Date: 20260118
  Serious: No
  Sender: SANDOZ
  Company Number: US-SANDOZ-SDZ2025US079215

PATIENT
  Age: 16 Year
  Sex: Male
  Weight: 43.084 kg

DRUGS (2)
  1. OMNITROPE [Suspect]
     Active Substance: SOMATROPIN
     Indication: Hypopituitarism
     Dosage: 2.4 MG, QD
     Route: 058
     Dates: start: 202502
  2. OMNITROPE [Suspect]
     Active Substance: SOMATROPIN
     Indication: Hypopituitarism
     Dosage: 2.4 MG, QD
     Route: 058
     Dates: start: 202502

REACTIONS (3)
  - Circumstance or information capable of leading to medication error [Unknown]
  - Product use complaint [Unknown]
  - Device breakage [Unknown]

NARRATIVE: CASE EVENT DATE: 20251001
